FAERS Safety Report 5732169-0 (Version None)
Quarter: 2008Q2

REPORT INFORMATION
  Report Type: 
  Country: None (occurrence: None)
  Receive Date: 20080508
  Receipt Date: 20080424
  Transmission Date: 20081010
  Serious: Yes (Other)
  Sender: FDA-Public Use
  Company Number: SE-ELI_LILLY_AND_COMPANY-SE200802005495

PATIENT
  Sex: Male
  Weight: 77.6 kg

DRUGS (4)
  1. HUMATROPE [Suspect]
     Indication: GROWTH HORMONE DEFICIENCY
     Dosage: 0.4 MG, DAILY (1/D)
     Route: 058
     Dates: start: 19980305, end: 20060101
  2. HUMATROPE [Suspect]
     Dosage: 0.4 MG, DAILY (1/D)
     Route: 058
     Dates: start: 20061214, end: 20070220
  3. LEVOTHYROXINE SODIUM [Concomitant]
     Indication: HYPOTHYROIDISM
     Dosage: 100 UG, DAILY (1/D)
     Route: 048
     Dates: start: 19960520
  4. CORTISONACETAT [Concomitant]
     Indication: ADRENAL INSUFFICIENCY
     Dosage: 20 MG, DAILY (1/D)
     Route: 048
     Dates: start: 19960424

REACTIONS (1)
  - HAEMOGLOBIN INCREASED [None]
